FAERS Safety Report 9729713 (Version 2)
Quarter: 2015Q3

REPORT INFORMATION
  Report Type: Spontaneous
  Country: US (occurrence: US)
  Receive Date: 20131204
  Receipt Date: 20150804
  Transmission Date: 20151125
  Serious: No
  Sender: FDA-Public Use
  Company Number: US-GILEAD-2009-0021745

PATIENT
  Age: 72 Year
  Sex: Female

DRUGS (10)
  1. GLIPIZIDE-METFORMIN [Concomitant]
  2. LETAIRIS [Suspect]
     Active Substance: AMBRISENTAN
     Indication: PULMONARY ARTERIAL HYPERTENSION
     Route: 048
     Dates: start: 20090408
  3. CALCIUM [Concomitant]
     Active Substance: CALCIUM
  4. AMLODIPINE BESYLATE. [Concomitant]
     Active Substance: AMLODIPINE BESYLATE
  5. LABETALOL HCL [Concomitant]
     Active Substance: LABETALOL HYDROCHLORIDE
  6. TYLENOL [Concomitant]
     Active Substance: ACETAMINOPHEN
  7. REVATIO [Concomitant]
     Active Substance: SILDENAFIL CITRATE
  8. ASPIRIN. [Concomitant]
     Active Substance: ASPIRIN
  9. DIOVAN [Concomitant]
     Active Substance: VALSARTAN
  10. MULTIVITAMIN [Concomitant]
     Active Substance: VITAMINS

REACTIONS (1)
  - Peripheral swelling [Unknown]
